FAERS Safety Report 9104588 (Version 4)
Quarter: 2013Q2

REPORT INFORMATION
  Report Type: Spontaneous
  Country: US (occurrence: US)
  Receive Date: 20130220
  Receipt Date: 20130419
  Transmission Date: 20140414
  Serious: Yes (Other)
  Sender: FDA-Public Use
  Company Number: US-PFIZER INC-2013062845

PATIENT
  Age: 97 Year
  Sex: Female

DRUGS (7)
  1. LYRICA [Suspect]
     Indication: FIBROMYALGIA
     Dosage: 50 MG, 2X/DAY
     Route: 048
  2. LYRICA [Suspect]
     Dosage: 75 MG, 2X/DAY
     Route: 048
     Dates: start: 20121011
  3. LYRICA [Suspect]
     Dosage: 50 MG, 2X/DAY
     Route: 048
     Dates: start: 20130128, end: 20130206
  4. SAVELLA [Suspect]
     Dosage: 100 MG, 2X/DAY
     Dates: end: 20130314
  5. LUNESTA [Concomitant]
     Dosage: 3 MG, UNK
  6. PROTONIX [Concomitant]
     Dosage: 40 MG, UNK
  7. ZANTAC [Concomitant]
     Dosage: 300 MG, UNK

REACTIONS (11)
  - Blood pressure increased [Not Recovered/Not Resolved]
  - Sleep disorder [Recovered/Resolved]
  - Dizziness [Recovered/Resolved]
  - Feeling abnormal [Recovered/Resolved]
  - Headache [Unknown]
  - Pain [Unknown]
  - Pruritus [Not Recovered/Not Resolved]
  - Formication [Not Recovered/Not Resolved]
  - Euphoric mood [Unknown]
  - Confusional state [Unknown]
  - Disorientation [Unknown]
